FAERS Safety Report 6061663-0 (Version None)
Quarter: 2009Q1

REPORT INFORMATION
  Report Type: 
  Country: None (occurrence: None)
  Receive Date: 20090202
  Receipt Date: 20090123
  Transmission Date: 20090719
  Serious: Yes (Hospitalization)
  Sender: FDA-Public Use
  Company Number: B0555977A

PATIENT
  Age: 69 Year
  Sex: Male

DRUGS (2)
  1. FORTUM [Suspect]
     Dosage: 4G PER DAY
     Route: 042
     Dates: start: 20081226, end: 20081228
  2. MECHANICAL VENTILATION [Concomitant]

REACTIONS (2)
  - ANTIBIOTIC LEVEL ABOVE THERAPEUTIC [None]
  - CONVULSION [None]
